FAERS Safety Report 8117687-2 (Version None)
Quarter: 2012Q1

REPORT INFORMATION
  Report Type: 
  Country: None (occurrence: None)
  Receive Date: 20120203
  Receipt Date: 20120203
  Transmission Date: 20120608
  Serious: Yes (Other)
  Sender: FDA-Public Use
  Company Number: None

PATIENT
  Sex: Female
  Weight: 81.6475 kg

DRUGS (1)
  1. BOTOX [Suspect]
     Indication: MIGRAINE
     Dosage: BOTOX 200U TBA
     Dates: start: 20111109

REACTIONS (3)
  - SWELLING FACE [None]
  - LACRIMATION INCREASED [None]
  - EYE SWELLING [None]
